FAERS Safety Report 12192900 (Version 4)
Quarter: 2016Q2

REPORT INFORMATION
  Report Type: Report from Study
  Country: US (occurrence: US)
  Receive Date: 20160318
  Receipt Date: 20160615
  Transmission Date: 20160815
  Serious: Yes (Other)
  Sender: FDA-Public Use
  Company Number: US-ABBVIE-16P-163-1583270-00

PATIENT
  Age: 45 Year
  Sex: Female

DRUGS (2)
  1. LUPRON DEPOT [Suspect]
     Active Substance: LEUPROLIDE ACETATE
     Indication: ENDOMETRIOSIS
     Dosage: RECEIVED ONE SINGLE DOSE
     Route: 050
     Dates: start: 2002, end: 2002
  2. LUPRON DEPOT [Suspect]
     Active Substance: LEUPROLIDE ACETATE
     Dosage: HS
     Route: 050
     Dates: start: 20160212

REACTIONS (16)
  - Increased appetite [Not Recovered/Not Resolved]
  - Hot flush [Recovered/Resolved]
  - Uterine spasm [Recovered/Resolved]
  - Fatigue [Recovering/Resolving]
  - Oophorectomy [Recovered/Resolved]
  - Fallopian tube operation [Recovered/Resolved]
  - Mood swings [Not Recovered/Not Resolved]
  - Vaginal haemorrhage [Recovered/Resolved]
  - Adnexa uteri pain [Not Recovered/Not Resolved]
  - Procedural complication [Recovered/Resolved]
  - Pelvic pain [Recovering/Resolving]
  - Food craving [Not Recovered/Not Resolved]
  - Feeling cold [Not Recovered/Not Resolved]
  - Menorrhagia [Recovered/Resolved]
  - Ovarian oedema [Recovered/Resolved]
  - Adhesion [Unknown]

NARRATIVE: CASE EVENT DATE: 2002
